FAERS Safety Report 16999149 (Version 2)
Quarter: 2020Q1

REPORT INFORMATION
  Report Type: Spontaneous
  Country: US (occurrence: US)
  Receive Date: 20191105
  Receipt Date: 20200206
  Transmission Date: 20200409
  Serious: No
  Sender: FDA-Public Use
  Company Number: US-RADIUS HEALTH INC.-2019US003145

PATIENT
  Age: 51 Year
  Sex: Female

DRUGS (1)
  1. TYMLOS [Suspect]
     Active Substance: ABALOPARATIDE
     Indication: OSTEOPOROSIS POSTMENOPAUSAL
     Dosage: 80 MCG
     Route: 058

REACTIONS (7)
  - Visual acuity reduced [Not Recovered/Not Resolved]
  - Anxiety [Unknown]
  - Product dose omission [Not Recovered/Not Resolved]
  - Product storage error [Unknown]
  - Wrong technique in product usage process [Unknown]
  - Product quality issue [Unknown]
  - Palpitations [Unknown]

NARRATIVE: CASE EVENT DATE: 20190830
